FAERS Safety Report 9746318 (Version 1)
Quarter: 2013Q4

REPORT INFORMATION
  Report Type: Spontaneous
  Country: US (occurrence: US)
  Receive Date: 20131211
  Receipt Date: 20131211
  Transmission Date: 20140711
  Serious: No
  Sender: FDA-Public Use
  Company Number: US-VERTEX PHARMACEUTICALS INC-2013-011496

PATIENT
  Age: 30 Year
  Sex: Female
  Weight: 70.3 kg

DRUGS (4)
  1. INCIVEK [Suspect]
     Indication: HEPATITIS C
     Dosage: 2 DF, TID
     Route: 048
     Dates: start: 20130909, end: 20131130
  2. RIBAPAK [Suspect]
     Indication: HEPATITIS C
     Dosage: 1200 MG, BID
     Route: 048
     Dates: start: 20130909
  3. RIBAPAK [Suspect]
     Dosage: 800 MG, BID
     Route: 048
     Dates: start: 201311
  4. PEGASYS [Suspect]
     Indication: HEPATITIS C
     Dosage: UNK, QW
     Route: 058
     Dates: start: 20130909

REACTIONS (6)
  - Trichotillomania [Not Recovered/Not Resolved]
  - Insomnia [Not Recovered/Not Resolved]
  - Scratch [Not Recovered/Not Resolved]
  - Formication [Not Recovered/Not Resolved]
  - Pruritus [Not Recovered/Not Resolved]
  - Anaemia [Not Recovered/Not Resolved]
